FAERS Safety Report 5273037-0 (Version None)
Quarter: 2007Q1

REPORT INFORMATION
  Report Type: 
  Country: None (occurrence: None)
  Receive Date: 20070322
  Receipt Date: 20070307
  Transmission Date: 20070707
  Serious: Yes (Hospitalization)
  Sender: FDA-Public Use
  Company Number: US-SHR-US-2006-038524

PATIENT
  Age: 46 Year
  Sex: Male
  Weight: 65.76 kg

DRUGS (16)
  1. BETASERON [Suspect]
     Indication: SECONDARY PROGRESSIVE MULTIPLE SCLEROSIS
     Dosage: 8 MIU, EVERY 2D
     Route: 058
     Dates: start: 19990827
  2. AMITRIPTYLINE HCL [Concomitant]
     Dosage: 75 MG, UNK
     Route: 048
  3. LORAZEPAM [Concomitant]
     Dosage: 1.5 MG, UNK
     Route: 048
  4. LISINOPRIL [Concomitant]
     Dosage: 10 MG, UNK
     Route: 048
  5. GENEBS [Concomitant]
     Indication: PAIN
  6. DED [Concomitant]
  7. PLAVIX [Concomitant]
  8. SIMVASTATIN [Concomitant]
  9. AMBIEN [Concomitant]
     Indication: INSOMNIA
  10. AMITRIPTYLINE HCL [Concomitant]
     Indication: DEPRESSION
  11. CHANTIX (NICOTINE ANTAGONIST) [Concomitant]
  12. DETROL [Concomitant]
     Indication: BLADDER DISORDER
  13. METOPROLOL SUCCINATE [Concomitant]
     Indication: HYPERTENSION
  14. NEXIUM [Concomitant]
  15. ASPIRIN [Concomitant]
  16. TYLENOL [Concomitant]
     Indication: PAIN

REACTIONS (23)
  - ABDOMINAL PAIN [None]
  - ANAEMIA [None]
  - ANOREXIA [None]
  - AORTIC ARTERIOSCLEROSIS [None]
  - CEREBRAL ATROPHY [None]
  - COUGH [None]
  - EXCORIATION [None]
  - FALL [None]
  - FATIGUE [None]
  - HAND FRACTURE [None]
  - HYPOTENSION [None]
  - INCORRECT ROUTE OF DRUG ADMINISTRATION [None]
  - INJECTION SITE NECROSIS [None]
  - JOINT DISLOCATION [None]
  - JOINT INJURY [None]
  - MULTIPLE SCLEROSIS [None]
  - MYOCARDIAL INFARCTION [None]
  - NOCTURIA [None]
  - OSTEOPENIA [None]
  - POLYCYTHAEMIA [None]
  - SKIN LACERATION [None]
  - SPINAL OSTEOARTHRITIS [None]
  - WEIGHT DECREASED [None]
